FAERS Safety Report 9415767 (Version 1)
Quarter: 2013Q3

REPORT INFORMATION
  Report Type: Spontaneous
  Country: BR (occurrence: BR)
  Receive Date: 20130724
  Receipt Date: 20130724
  Transmission Date: 20140515
  Serious: Yes (Other)
  Sender: FDA-Public Use
  Company Number: BR-ABBOTT-13X-020-1122451-00

PATIENT
  Sex: Female
  Weight: 48.4 kg

DRUGS (6)
  1. DEPAKENE [Suspect]
     Indication: PRODUCT USED FOR UNKNOWN INDICATION
     Dosage: AT 7PM
  2. AKINETON [Suspect]
     Indication: PRODUCT USED FOR UNKNOWN INDICATION
     Dosage: AT 7PM
  3. PROLOPA [Suspect]
     Indication: PARKINSON^S DISEASE
     Dosage: 1/4 TABLET EVERY 6 HOURS
  4. PROLOPA [Suspect]
     Dosage: 1/4 TABLET EVERY 6 HOURS
  5. MANTIDAN [Suspect]
     Indication: PRODUCT USED FOR UNKNOWN INDICATION
     Dosage: AT 7PM
  6. DIURISA [Suspect]
     Indication: PRODUCT USED FOR UNKNOWN INDICATION
     Dosage: AT 7PM

REACTIONS (11)
  - Abasia [Unknown]
  - Depression [Recovered/Resolved]
  - Paralysis [Recovered/Resolved]
  - Loss of control of legs [Unknown]
  - Feeling abnormal [Unknown]
  - Undersensing [Unknown]
  - Tongue movement disturbance [Unknown]
  - Weight decreased [Unknown]
  - Malaise [Unknown]
  - Drug ineffective [Unknown]
  - Therapeutic response unexpected [Unknown]
